FAERS Safety Report 19887244 (Version 1)
Quarter: 2021Q3

REPORT INFORMATION
  Report Type: Spontaneous
  Country: FR (occurrence: FR)
  Receive Date: 20210927
  Receipt Date: 20210927
  Transmission Date: 20211014
  Serious: Yes (Hospitalization, Other)
  Sender: FDA-Public Use
  Company Number: FR-BAYER-2021A214581

PATIENT
  Age: 68 Year
  Sex: Male

DRUGS (3)
  1. NEXAVAR [Suspect]
     Active Substance: SORAFENIB
     Indication: HEPATOCELLULAR CARCINOMA
     Dosage: DAILY DOSE 800 MG
     Route: 048
     Dates: start: 201901, end: 202106
  2. STIVARGA [Suspect]
     Active Substance: REGORAFENIB
     Indication: HEPATOCELLULAR CARCINOMA
     Dosage: 80 MG, QD FOR 3 WEEKS
     Route: 048
     Dates: start: 202106
  3. RED BLOOD CELLS [Concomitant]
     Active Substance: HUMAN RED BLOOD CELL
     Dosage: 1 UNIT OF PACKED
     Route: 042

REACTIONS (8)
  - Visual impairment [None]
  - Melaena [None]
  - Upper gastrointestinal haemorrhage [None]
  - Anaemia [None]
  - Off label use [None]
  - Dyspnoea [None]
  - Hyperglycaemia [None]
  - Diarrhoea [Recovered/Resolved]
